FAERS Safety Report 4675926-4 (Version None)
Quarter: 2005Q2

REPORT INFORMATION
  Report Type: 
  Country: None (occurrence: None)
  Receive Date: 20050527
  Receipt Date: 20050520
  Transmission Date: 20051028
  Serious: Yes (Other)
  Sender: FDA-Public Use
  Company Number: PHBS2005US07252

PATIENT
  Age: 77 Year
  Sex: Female

DRUGS (7)
  1. IMATINIB [Suspect]
     Indication: CHRONIC MYELOID LEUKAEMIA
     Dosage: 400 MG/DAY
  2. PREDNISONE [Concomitant]
     Dosage: 6 MG/D
  3. PREDNISONE [Concomitant]
     Dosage: 30 MG/D
  4. DIGOXIN [Concomitant]
  5. HYDROCHLOROTHIAZIDE [Concomitant]
  6. MEDROXYPROGESTERONE [Concomitant]
  7. ESTRADIOL [Concomitant]

REACTIONS (16)
  - ACTIVITIES OF DAILY LIVING IMPAIRED [None]
  - ALVEOLITIS ALLERGIC [None]
  - DYSPNOEA EXERTIONAL [None]
  - EOSINOPHIL PERCENTAGE INCREASED [None]
  - HYPOVOLAEMIA [None]
  - LUNG INFILTRATION [None]
  - LYMPHOCYTE PERCENTAGE DECREASED [None]
  - NEUTROPHIL PERCENTAGE DECREASED [None]
  - OXYGEN SATURATION DECREASED [None]
  - PNEUMONITIS [None]
  - PRURITUS [None]
  - PYREXIA [None]
  - RASH ERYTHEMATOUS [None]
  - RASH PRURITIC [None]
  - RHONCHI [None]
  - WHITE BLOOD CELL COUNT DECREASED [None]
